FAERS Safety Report 5596859-5 (Version None)
Quarter: 2008Q1

REPORT INFORMATION
  Report Type: 
  Country: None (occurrence: None)
  Receive Date: 20080119
  Receipt Date: 20080109
  Transmission Date: 20080703
  Serious: Yes (Other)
  Sender: FDA-Public Use
  Company Number: US-PFIZER INC-2008004576

PATIENT
  Sex: Male

DRUGS (1)
  1. CHANTIX [Suspect]
     Indication: SMOKING CESSATION THERAPY
     Dates: start: 20071201, end: 20071201

REACTIONS (7)
  - DIARRHOEA [None]
  - DYSGEUSIA [None]
  - HAEMORRHOIDS [None]
  - LARGE INTESTINAL HAEMORRHAGE [None]
  - ORAL INTAKE REDUCED [None]
  - STOMACH DISCOMFORT [None]
  - UNEVALUABLE EVENT [None]
